FAERS Safety Report 5751697-5 (Version None)
Quarter: 2008Q2

REPORT INFORMATION
  Report Type: 
  Country: None (occurrence: None)
  Receive Date: 20080528
  Receipt Date: 20080523
  Transmission Date: 20081010
  Serious: Yes (Life-Threatening, Hospitalization)
  Sender: FDA-Public Use
  Company Number: PHHY2008CH05270

PATIENT
  Age: 41 Year
  Sex: Male

DRUGS (14)
  1. CLOZAPINE [Suspect]
     Indication: SCHIZOPHRENIA, DISORGANISED TYPE
     Dosage: 500 MG/DAY
     Dates: start: 20010115, end: 20080301
  2. CLOZAPINE [Suspect]
     Dates: start: 20080310
  3. CLOZAPINE [Suspect]
     Dosage: 50MG/DAY
  4. CLOZAPINE [Suspect]
     Dosage: 250MG/DAY
     Dates: start: 20080320
  5. CLOZAPINE [Suspect]
     Dosage: 300MG/DAY
     Dates: start: 20080323
  6. CLOZAPINE [Suspect]
     Dosage: 350MG/DAY
     Dates: start: 20080324
  7. CLOZAPINE [Suspect]
     Dosage: 400MG/DAY
     Dates: start: 20080405
  8. SOLIAN [Suspect]
     Indication: SCHIZOPHRENIA, DISORGANISED TYPE
     Dosage: 200 MG/DAY
     Dates: start: 20080217, end: 20080301
  9. NOZINAN [Suspect]
     Indication: SCHIZOPHRENIA, DISORGANISED TYPE
     Dosage: 100 MG/DAY
     Dates: start: 20080225, end: 20080301
  10. REMERON [Suspect]
     Indication: SCHIZOPHRENIA, DISORGANISED TYPE
     Dosage: 30 MG/DAY
     Dates: start: 20080225, end: 20080301
  11. HALOPERIDOL [Concomitant]
     Dates: end: 20080221
  12. CITALOPRAM HYDROBROMIDE [Concomitant]
     Dates: end: 20080221
  13. CLOTIAPINE [Concomitant]
     Dates: end: 20080221
  14. ABILIFY [Concomitant]

REACTIONS (11)
  - AGITATION [None]
  - ANXIETY [None]
  - BLOOD CREATINE PHOSPHOKINASE INCREASED [None]
  - CONFUSIONAL STATE [None]
  - EXTRAPYRAMIDAL DISORDER [None]
  - HAEMODYNAMIC INSTABILITY [None]
  - HYPERTHERMIA [None]
  - MUSCLE RIGIDITY [None]
  - NEUROLEPTIC MALIGNANT SYNDROME [None]
  - PYREXIA [None]
  - RHABDOMYOLYSIS [None]
